FAERS Safety Report 8928579 (Version 2)
Quarter: 2012Q4

REPORT INFORMATION
  Report Type: 
  Country: US (occurrence: US)
  Receive Date: 20121127
  Receipt Date: 20121228
  Transmission Date: 20130627
  Serious: No
  Sender: FDA-Public Use
  Company Number: US-009507513-1211USA008215

PATIENT
  Age: 58 Year
  Sex: Male
  Weight: 80.73 kg

DRUGS (1)
  1. JANUMET [Suspect]
     Indication: DIABETES MELLITUS
     Dosage: 50mg/500mg, qd
     Route: 048
     Dates: start: 20121116, end: 20121117

REACTIONS (1)
  - Rash pruritic [Recovered/Resolved]
